FAERS Safety Report 21098687 (Version 1)
Quarter: 2022Q3

REPORT INFORMATION
  Report Type: Other
  Country: NL (occurrence: NL)
  Receive Date: 20220719
  Receipt Date: 20220719
  Transmission Date: 20221027
  Serious: Yes (Death, Other)
  Sender: FDA-Public Use
  Company Number: NL-ASTELLAS-2022US025327

PATIENT
  Sex: Female

DRUGS (2)
  1. TARCEVA [Suspect]
     Active Substance: ERLOTINIB HYDROCHLORIDE
     Indication: Neoplasm malignant
     Dosage: UNK UNK, UNKNOWN FREQ.
     Route: 048
  2. RAMUCIRUMAB [Suspect]
     Active Substance: RAMUCIRUMAB
     Indication: Neoplasm malignant
     Dosage: UNK UNK, UNKNOWN FREQ.
     Route: 065

REACTIONS (1)
  - Malignant neoplasm progression [Fatal]
